FAERS Safety Report 6734932-6 (Version None)
Quarter: 2010Q2

REPORT INFORMATION
  Report Type: 
  Country: None (occurrence: None)
  Receive Date: 20100521
  Receipt Date: 20100517
  Transmission Date: 20101027
  Serious: Yes (Hospitalization)
  Sender: FDA-Public Use
  Company Number: US-ASTRAZENECA-2008UW16876

PATIENT
  Age: 37 Year
  Sex: Male
  Weight: 104.3 kg

DRUGS (32)
  1. SEROQUEL [Suspect]
     Indication: BIPOLAR DISORDER
     Route: 048
     Dates: start: 19970101, end: 20000101
  2. SEROQUEL [Suspect]
     Indication: ANXIETY
     Route: 048
     Dates: start: 19970101, end: 20000101
  3. SEROQUEL [Suspect]
     Route: 048
     Dates: start: 20010101, end: 20020101
  4. SEROQUEL [Suspect]
     Route: 048
     Dates: start: 20010101, end: 20020101
  5. SEROQUEL [Suspect]
     Route: 048
     Dates: start: 20040101, end: 20070101
  6. SEROQUEL [Suspect]
     Route: 048
     Dates: start: 20040101, end: 20070101
  7. SEROQUEL [Suspect]
     Dosage: PROGRESSING EVERY 3-5 DAYS 100MG BID, 200MG BID, 300MG BID
     Route: 048
     Dates: start: 20051103
  8. SEROQUEL [Suspect]
     Dosage: PROGRESSING EVERY 3-5 DAYS 100MG BID, 200MG BID, 300MG BID
     Route: 048
     Dates: start: 20051103
  9. SEROQUEL [Suspect]
     Route: 048
     Dates: start: 20030101
  10. SEROQUEL [Suspect]
     Route: 048
     Dates: start: 20030101
  11. RISPERDAL [Concomitant]
     Dates: start: 19980101
  12. ZYPREXA [Concomitant]
     Indication: BIPOLAR DISORDER
     Dates: start: 19980101, end: 19990101
  13. ZYPREXA [Concomitant]
     Dosage: 50MG QHS EVERY OTHER DAY
     Dates: start: 20050627
  14. ZYPREXA [Concomitant]
     Dates: start: 20030101
  15. SYMBYAX [Concomitant]
     Dates: start: 19980101, end: 19990101
  16. KLONOPIN [Concomitant]
     Dates: start: 20060101
  17. LITHIUM CITRATE [Concomitant]
     Indication: BIPOLAR DISORDER
     Dosage: 2 AM, 1 NOON AND 2 PM
     Dates: start: 20050627
  18. LITHIUM CITRATE [Concomitant]
     Dates: start: 20070115
  19. LITHIUM CITRATE [Concomitant]
     Dosage: 2 X 2 A DAY
     Dates: start: 20030101
  20. PREVACID [Concomitant]
     Indication: ABDOMINAL DISCOMFORT
     Dosage: 30 MG ONE OR TWO A DAY
     Dates: start: 20050627
  21. EFFEXOR XR [Concomitant]
     Dosage: 75MG-150MG
     Dates: start: 20060527
  22. CRESTOR [Concomitant]
     Dates: start: 20051103
  23. ZOLOFT [Concomitant]
     Indication: ANXIETY
     Dosage: 1 X 2 A DAY
     Dates: start: 20020101
  24. ZOLOFT [Concomitant]
     Indication: BIPOLAR DISORDER
     Dosage: 1 X 2 A DAY
     Dates: start: 20020101
  25. DIOVAN [Concomitant]
     Indication: BLOOD PRESSURE
     Dates: start: 20040101
  26. NORFLEX [Concomitant]
     Dates: start: 20070727
  27. TRAMADOL HCL [Concomitant]
     Dates: start: 20070727
  28. ATENOLOL [Concomitant]
     Dates: start: 20070727
  29. BENICAR [Concomitant]
     Dates: start: 20070727
  30. TRICOR [Concomitant]
     Dates: start: 20070727
  31. VYTORIN [Concomitant]
     Dates: start: 20070727
  32. LAMICTAL [Concomitant]
     Dates: start: 20070727

REACTIONS (9)
  - BACK DISORDER [None]
  - BACK PAIN [None]
  - CERVICAL VERTEBRAL FRACTURE [None]
  - HYPERGLYCAEMIA [None]
  - IMPAIRED FASTING GLUCOSE [None]
  - INTERVERTEBRAL DISC PROTRUSION [None]
  - LUMBAR RADICULOPATHY [None]
  - TYPE 2 DIABETES MELLITUS [None]
  - WEIGHT INCREASED [None]
